FAERS Safety Report 6162356-1 (Version None)
Quarter: 2009Q2

REPORT INFORMATION
  Report Type: 
  Country: None (occurrence: None)
  Receive Date: 20090417
  Receipt Date: 20090413
  Transmission Date: 20091009
  Serious: Yes (Death, Life-Threatening, Other)
  Sender: FDA-Public Use
  Company Number: 200812939BYL

PATIENT
  Age: 75 Year
  Sex: Male

DRUGS (25)
  1. FLUDARA [Suspect]
     Indication: EXTRANODAL MARGINAL ZONE B-CELL LYMPHOMA (MALT TYPE) STAGE III
     Dosage: 30 MG ORAL ; 30 MG ORAL ; 30 MG ORAL
     Route: 048
     Dates: start: 20080205, end: 20080207
  2. FLUDARA [Suspect]
     Indication: EXTRANODAL MARGINAL ZONE B-CELL LYMPHOMA (MALT TYPE) STAGE III
     Dosage: 30 MG ORAL ; 30 MG ORAL ; 30 MG ORAL
     Route: 048
     Dates: start: 20080303, end: 20080307
  3. FLUDARA [Suspect]
     Indication: EXTRANODAL MARGINAL ZONE B-CELL LYMPHOMA (MALT TYPE) STAGE III
     Dosage: 30 MG ORAL ; 30 MG ORAL ; 30 MG ORAL
     Route: 048
     Dates: start: 20080331, end: 20080404
  4. DECADRON [Suspect]
     Indication: EXTRANODAL MARGINAL ZONE B-CELL LYMPHOMA (MALT TYPE) STAGE III
     Dosage: SEE IMAGE
     Route: 048
     Dates: start: 20080328, end: 20080331
  5. DECADRON [Suspect]
     Indication: EXTRANODAL MARGINAL ZONE B-CELL LYMPHOMA (MALT TYPE) STAGE III
     Dosage: SEE IMAGE
     Route: 048
     Dates: start: 20080401, end: 20080402
  6. DECADRON [Suspect]
     Indication: EXTRANODAL MARGINAL ZONE B-CELL LYMPHOMA (MALT TYPE) STAGE III
     Dosage: SEE IMAGE
     Route: 048
     Dates: start: 20080403, end: 20080404
  7. DECADRON [Suspect]
     Indication: EXTRANODAL MARGINAL ZONE B-CELL LYMPHOMA (MALT TYPE) STAGE III
     Dosage: SEE IMAGE
     Route: 048
     Dates: start: 20080405, end: 20080406
  8. DECADRON [Suspect]
     Indication: EXTRANODAL MARGINAL ZONE B-CELL LYMPHOMA (MALT TYPE) STAGE III
     Dosage: SEE IMAGE
     Route: 048
     Dates: start: 20080407, end: 20080408
  9. DECADRON [Suspect]
     Indication: EXTRANODAL MARGINAL ZONE B-CELL LYMPHOMA (MALT TYPE) STAGE III
     Dosage: SEE IMAGE
     Route: 048
     Dates: start: 20080409, end: 20080410
  10. DECADRON [Suspect]
     Indication: EXTRANODAL MARGINAL ZONE B-CELL LYMPHOMA (MALT TYPE) STAGE III
     Dosage: SEE IMAGE
     Route: 048
     Dates: start: 20080411, end: 20080424
  11. DECADRON [Suspect]
     Indication: EXTRANODAL MARGINAL ZONE B-CELL LYMPHOMA (MALT TYPE) STAGE III
     Dosage: SEE IMAGE
     Route: 048
     Dates: start: 20080425, end: 20080501
  12. DECADRON [Suspect]
     Indication: EXTRANODAL MARGINAL ZONE B-CELL LYMPHOMA (MALT TYPE) STAGE III
     Dosage: SEE IMAGE
     Route: 048
     Dates: start: 20080502, end: 20080510
  13. RITUXAN [Concomitant]
  14. BAKTAR [Concomitant]
  15. DEPAS (ETIZOLAM) [Concomitant]
  16. LENDORM [Concomitant]
  17. TAMSULOSIN HCL [Concomitant]
  18. OMEPRAZOLE [Concomitant]
  19. MAGNESIUM OXIDE (MAGNESIUM OXIDE) [Concomitant]
  20. NEOMALLERMIN TR (CHLORPHENAMINE MALEATE) [Concomitant]
  21. LOXONIN (LOXOPROFEN) [Concomitant]
  22. CYCLOPHOSPHAMIDE [Concomitant]
  23. DOXORUBICIN HCL [Concomitant]
  24. VINCRISTINE SULFATE [Concomitant]
  25. PREDNISOLONE [Concomitant]

REACTIONS (7)
  - ABDOMINAL DISCOMFORT [None]
  - BONE MARROW FAILURE [None]
  - BRONCHOPULMONARY ASPERGILLOSIS [None]
  - LOSS OF CONSCIOUSNESS [None]
  - NAUSEA [None]
  - PLATELET COUNT DECREASED [None]
  - PNEUMONIA [None]
